FAERS Safety Report 13026027 (Version 1)
Quarter: 2016Q4

REPORT INFORMATION
  Report Type: Spontaneous
  Country: US (occurrence: US)
  Receive Date: 20161213
  Receipt Date: 20161213
  Transmission Date: 20170207
  Serious: Yes (Life-Threatening, Hospitalization)
  Sender: FDA-Public Use
  Company Number: None

PATIENT
  Age: 61 Year
  Sex: Female
  Weight: 69.75 kg

DRUGS (1)
  1. AZITHROMYCIN ANHYDROUS. [Suspect]
     Active Substance: AZITHROMYCIN ANHYDROUS
     Indication: COUGH
     Dosage: ?          QUANTITY:6 TABLET(S);?
     Route: 048
     Dates: start: 20160919, end: 20160923

REACTIONS (2)
  - Cardiac arrest [None]
  - Long QT syndrome [None]

NARRATIVE: CASE EVENT DATE: 20161002
